FAERS Safety Report 20155214 (Version 2)
Quarter: 2022Q1

REPORT INFORMATION
  Report Type: Report from Study
  Country: RU (occurrence: RU)
  Receive Date: 20211207
  Receipt Date: 20220312
  Transmission Date: 20220423
  Serious: No
  Sender: FDA-Public Use
  Company Number: RU-FEDR-MF-002-8512001-20211125-0004SG

PATIENT
  Age: 41 Year
  Sex: Male
  Weight: 103 kg

DRUGS (1)
  1. FEDRATINIB [Suspect]
     Active Substance: FEDRATINIB
     Indication: Primary myelofibrosis
     Dosage: 400 MG X 1 X 1 DAYS
     Route: 048
     Dates: start: 20210208

REACTIONS (1)
  - Vitamin B1 decreased [Recovering/Resolving]

NARRATIVE: CASE EVENT DATE: 20210923
